FAERS Safety Report 9832614 (Version 2)
Quarter: 2014Q1

REPORT INFORMATION
  Report Type: Spontaneous
  Country: ZA (occurrence: US)
  Receive Date: 20140121
  Receipt Date: 20140121
  Transmission Date: 20141002
  Serious: Yes (Hospitalization, Other)
  Sender: FDA-Public Use
  Company Number: ZA-PFIZER INC-2014017032

PATIENT
  Age: 27 Year
  Sex: Male

DRUGS (1)
  1. HALCION [Suspect]
     Indication: SLEEP DISORDER
     Dosage: UNK
     Dates: start: 198012

REACTIONS (4)
  - Upper airway obstruction [Recovered/Resolved]
  - Respiratory arrest [Recovered/Resolved]
  - Peripheral circulatory failure [Recovered/Resolved]
  - Loss of consciousness [Recovered/Resolved]
